FAERS Safety Report 6895604-0 (Version None)
Quarter: 2010Q3

REPORT INFORMATION
  Report Type: 
  Country: None (occurrence: None)
  Receive Date: 20100802
  Receipt Date: 20100727
  Transmission Date: 20110219
  Serious: Yes (Other)
  Sender: FDA-Public Use
  Company Number: US-BRISTOL-MYERS SQUIBB COMPANY-15214869

PATIENT
  Age: 59 Year
  Sex: Male

DRUGS (3)
  1. REYATAZ [Suspect]
  2. NORVIR [Concomitant]
  3. TRUVADA [Concomitant]

REACTIONS (1)
  - ANAPHYLACTIC REACTION [None]
